FAERS Safety Report 19024188 (Version 1)
Quarter: 2021Q1

REPORT INFORMATION
  Report Type: Spontaneous
  Country: DE (occurrence: DE)
  Receive Date: 20210318
  Receipt Date: 20210318
  Transmission Date: 20210420
  Serious: Yes (Hospitalization)
  Sender: FDA-Public Use
  Company Number: DE-SA-2021SA082493

PATIENT
  Age: 79 Year
  Sex: Male

DRUGS (3)
  1. CANDESARTAN/HYDROCHLOROTHIAZIDE ASPEN [Concomitant]
     Dosage: 1 DF, QD
  2. DOCETAXEL. [Suspect]
     Active Substance: DOCETAXEL
     Dosage: UNK
     Dates: start: 20201130
  3. NEBIVOLOL. [Concomitant]
     Active Substance: NEBIVOLOL
     Dosage: 5 MG, QD

REACTIONS (4)
  - Hypotension [Unknown]
  - Presyncope [Unknown]
  - Cold sweat [Unknown]
  - Chest pain [Unknown]

NARRATIVE: CASE EVENT DATE: 20201206
